FAERS Safety Report 21617043 (Version 1)
Quarter: 2022Q4

REPORT INFORMATION
  Report Type: Spontaneous
  Country: US (occurrence: US)
  Receive Date: 20221118
  Receipt Date: 20221118
  Transmission Date: 20230113
  Serious: Yes (Other)
  Sender: FDA-Public Use
  Company Number: US-AMERICAN REGENT INC-2022003282

PATIENT
  Sex: Female

DRUGS (1)
  1. CYANOCOBALAMIN [Suspect]
     Active Substance: CYANOCOBALAMIN
     Indication: Vitamin B12 decreased
     Dosage: 1000 MCG/1 INJECTION A MONTH
     Route: 065
     Dates: start: 2000

REACTIONS (2)
  - Liver disorder [Not Recovered/Not Resolved]
  - Low density lipoprotein increased [Unknown]
